FAERS Safety Report 9320222 (Version 1)
Quarter: 2013Q2

REPORT INFORMATION
  Report Type: Spontaneous
  Country: CA (occurrence: CA)
  Receive Date: 20130530
  Receipt Date: 20130530
  Transmission Date: 20140414
  Serious: Yes (Hospitalization)
  Sender: FDA-Public Use
  Company Number: CA-TEVA-409022USA

PATIENT
  Age: 55 Year
  Sex: Female
  Weight: 63 kg

DRUGS (4)
  1. CARBOPLATIN [Suspect]
     Dosage: 25.4762 MILLIGRAM DAILY; SOLUTION INTRAVENOUS
     Route: 042
  2. BENADRYL [Concomitant]
     Route: 065
  3. RANITIDINE [Concomitant]
     Route: 065
  4. TAXOL [Concomitant]
     Dosage: SOLUTION INTRAVENOUS

REACTIONS (7)
  - Cough [Recovered/Resolved]
  - Dry throat [Recovered/Resolved]
  - Oxygen supplementation [Recovered/Resolved]
  - Pruritus [Recovered/Resolved]
  - Throat irritation [Recovered/Resolved]
  - Nausea [Recovered/Resolved]
  - Paraesthesia [Recovered/Resolved]
